FAERS Safety Report 11999781 (Version 1)
Quarter: 2016Q1

REPORT INFORMATION
  Report Type: Spontaneous
  Country: US (occurrence: US)
  Receive Date: 20160204
  Receipt Date: 20160204
  Transmission Date: 20160526
  Serious: Yes (Other)
  Sender: FDA-Public Use
  Company Number: US-BAYER-2016-016589

PATIENT
  Age: 67 Year
  Sex: Male

DRUGS (2)
  1. ALEVE PM [Suspect]
     Active Substance: DIPHENHYDRAMINE HYDROCHLORIDE\NAPROXEN SODIUM
     Indication: SLEEP DISORDER THERAPY
     Dosage: 2 DF, HS
     Dates: start: 201601, end: 20160124
  2. ALEVE [Suspect]
     Active Substance: NAPROXEN SODIUM
     Indication: PAIN IN EXTREMITY
     Dosage: 2 DF, BID
     Route: 048
     Dates: start: 20151223, end: 20160124

REACTIONS (14)
  - Feeling abnormal [None]
  - Arthralgia [None]
  - Furuncle [None]
  - Hand-foot-and-mouth disease [None]
  - Pain in extremity [None]
  - Hypoaesthesia [None]
  - Limb discomfort [None]
  - Lower extremity mass [None]
  - Product use issue [None]
  - Product use issue [None]
  - Haemorrhage subcutaneous [None]
  - Nausea [None]
  - Furuncle [None]
  - Blister [None]

NARRATIVE: CASE EVENT DATE: 201512
